FAERS Safety Report 5626691-5 (Version None)
Quarter: 2008Q1

REPORT INFORMATION
  Report Type: 
  Country: None (occurrence: None)
  Receive Date: 20080214
  Receipt Date: 20080204
  Transmission Date: 20080703
  Serious: Yes (Hospitalization)
  Sender: FDA-Public Use
  Company Number: US-BAXTER-2008BH001022

PATIENT
  Sex: Female
  Weight: 40 kg

DRUGS (9)
  1. HEPARIN SODIUM [Suspect]
     Indication: HAEMODIALYSIS
     Dosage: DOSE UNIT:UNKNOWN
     Route: 010
     Dates: start: 20070101
  2. HEPARIN SODIUM [Suspect]
     Indication: FIBRIN
     Dosage: DOSE UNIT:UNKNOWN
     Route: 010
     Dates: start: 20070101
  3. LABETALOL HCL [Concomitant]
     Indication: BLOOD PRESSURE
     Route: 065
  4. HYDROZIDE [Concomitant]
     Indication: BLOOD PRESSURE
     Route: 065
  5. LISINOPRIL [Concomitant]
     Indication: BLOOD PRESSURE
     Route: 065
  6. TRAMADOL HCL [Concomitant]
     Indication: PAIN
     Route: 065
  7. NITROQUIK [Concomitant]
     Route: 065
  8. LORAZEPAM [Concomitant]
     Route: 065
     Dates: start: 20070101
  9. BABY ASPRIN [Concomitant]
     Indication: DRUG USE FOR UNKNOWN INDICATION
     Dosage: DOSE UNIT:UNKNOWN
     Route: 065
     Dates: start: 20070101

REACTIONS (12)
  - ABDOMINAL PAIN [None]
  - ABDOMINAL PAIN UPPER [None]
  - CHEST PAIN [None]
  - DIARRHOEA [None]
  - DYSPNOEA [None]
  - HYPERHIDROSIS [None]
  - HYPOTENSION [None]
  - LOSS OF CONSCIOUSNESS [None]
  - NAUSEA [None]
  - PLATELET COUNT DECREASED [None]
  - RETCHING [None]
  - VOMITING [None]
